FAERS Safety Report 5270774-9 (Version None)
Quarter: 2007Q1

REPORT INFORMATION
  Report Type: 
  Country: None (occurrence: None)
  Receive Date: 20061214
  Receipt Date: 20051227
  Transmission Date: 20070707
  Serious: Yes (Hospitalization, Other)
  Sender: FDA-Public Use
  Company Number: 2006000919

PATIENT
  Age: 54 Year
  Sex: Female

DRUGS (7)
  1. BEXTRA [Suspect]
     Indication: OSTEOARTHRITIS
     Dosage: (1 IN 1 D)
     Dates: start: 20030101
  2. CELEXA [Concomitant]
  3. DETROL LA [Concomitant]
  4. NEURONTIN [Concomitant]
  5. ACCUPRIL [Concomitant]
  6. NORVASC [Concomitant]
  7. ZOCOR [Concomitant]

REACTIONS (1)
  - PULMONARY EMBOLISM [None]
